FAERS Safety Report 12187666 (Version 1)
Quarter: 2016Q1

REPORT INFORMATION
  Report Type: Spontaneous
  Country: US (occurrence: US)
  Receive Date: 20160317
  Receipt Date: 20160317
  Transmission Date: 20160526
  Serious: No
  Sender: FDA-Public Use
  Company Number: US-PERRIGO-15US006276

PATIENT
  Age: 67 Year
  Sex: Male
  Weight: 57.6 kg

DRUGS (4)
  1. POLYETHYLENE GLYCOL [Concomitant]
     Active Substance: POLYETHYLENE GLYCOLS
     Indication: CONSTIPATION
     Dosage: UNK
     Route: 048
     Dates: start: 2014
  2. NICOTINE POLACRILEX [Suspect]
     Active Substance: NICOTINE
     Dosage: 2 MG, SINGLE
     Route: 002
     Dates: start: 20150617, end: 20150617
  3. NICOTINE POLACRILEX [Suspect]
     Active Substance: NICOTINE
     Indication: SMOKING CESSATION THERAPY
     Dosage: 2 MG, TWICE
     Route: 002
     Dates: start: 20150611, end: 20150611
  4. DRUGS USED IN BENIGN PROSTATIC HYPERTROPHY [Concomitant]
     Indication: PROSTATOMEGALY
     Dosage: UNK
     Route: 065
     Dates: start: 2014

REACTIONS (4)
  - Nausea [Recovering/Resolving]
  - Headache [Recovering/Resolving]
  - Dizziness [Recovering/Resolving]
  - Dyspepsia [Recovering/Resolving]

NARRATIVE: CASE EVENT DATE: 20150611
